FAERS Safety Report 16994785 (Version 1)
Quarter: 2019Q4

REPORT INFORMATION
  Report Type: Spontaneous
  Country: US (occurrence: US)
  Receive Date: 20191105
  Receipt Date: 20191105
  Transmission Date: 20200122
  Serious: Yes (Hospitalization, Other)
  Sender: FDA-Public Use
  Company Number: US-DENTSPLY PHARMACEUTICAL-2019SCDP000045

PATIENT
  Age: 35 Year
  Sex: Female

DRUGS (1)
  1. PRILOCAINE [Suspect]
     Active Substance: PRILOCAINE
     Indication: DENTAL LOCAL ANAESTHESIA
     Dosage: UNK

REACTIONS (2)
  - Methaemoglobinaemia [Unknown]
  - Maternal exposure during pregnancy [Unknown]
